FAERS Safety Report 12457109 (Version 5)
Quarter: 2016Q4

REPORT INFORMATION
  Report Type: Report from Study
  Country: BR (occurrence: BR)
  Receive Date: 20160610
  Receipt Date: 20161215
  Transmission Date: 20170207
  Serious: Yes (Other)
  Sender: FDA-Public Use
  Company Number: PHHY2016BR074477

PATIENT
  Sex: Female
  Weight: 62 kg

DRUGS (12)
  1. FORASEQ [Suspect]
     Active Substance: BUDESONIDE\FORMOTEROL FUMARATE
     Indication: ASTHMA
  2. PRELONE [Concomitant]
     Active Substance: PREDNISOLONE
     Indication: HEPATITIS
     Dosage: 1 DF, QD
     Route: 048
     Dates: start: 201601
  3. IMURAN [Concomitant]
     Active Substance: AZATHIOPRINE
     Indication: CARDIAC CIRRHOSIS
  4. IMURAN [Concomitant]
     Active Substance: AZATHIOPRINE
     Indication: HEPATITIS
     Dosage: 1 DF, QD
     Route: 048
     Dates: start: 201512
  5. DULOXETINE. [Concomitant]
     Active Substance: DULOXETINE
     Indication: DEPRESSION
     Dosage: 2 DF, QD
     Route: 048
     Dates: start: 201510
  6. OMEPRAZOLE. [Concomitant]
     Active Substance: OMEPRAZOLE
     Dosage: 1 DF, QD (JANUARY MONTH)
     Route: 048
  7. DOSS [Concomitant]
     Active Substance: DOCUSATE SODIUM
     Indication: HYPOVITAMINOSIS
     Dosage: 1 DF, QD
     Route: 048
     Dates: start: 201603
  8. FORASEQ [Suspect]
     Active Substance: BUDESONIDE\FORMOTEROL FUMARATE
     Indication: BRONCHITIS
     Dosage: 4 DF, QD 400 MCG OF BUDESONIDE/ 12 MG OF FORMOTEROL FUMARATE)
     Route: 055
  9. PRELONE [Concomitant]
     Active Substance: PREDNISOLONE
     Indication: CARDIAC CIRRHOSIS
  10. CIPROFLOXACIN. [Concomitant]
     Active Substance: CIPROFLOXACIN
     Indication: PROPHYLAXIS URINARY TRACT INFECTION
     Dosage: 1 DF, QD (6 MONTHS AGO STARTED)
     Route: 048
  11. OMEPRAZOLE. [Concomitant]
     Active Substance: OMEPRAZOLE
     Indication: PROPHYLAXIS
     Dosage: 2 DF, QD
     Route: 048
     Dates: start: 201510
  12. ONGLYZA [Concomitant]
     Active Substance: SAXAGLIPTIN HYDROCHLORIDE
     Indication: BLOOD GLUCOSE ABNORMAL
     Dosage: 1 DF, QD
     Route: 065
     Dates: start: 201512

REACTIONS (9)
  - Wrong technique in product usage process [Unknown]
  - Intervertebral disc protrusion [Not Recovered/Not Resolved]
  - Device damage [Unknown]
  - Incorrect dose administered [Recovered/Resolved with Sequelae]
  - Thrombosis [Recovering/Resolving]
  - Biliary cirrhosis primary [Recovering/Resolving]
  - Product physical issue [Unknown]
  - Device malfunction [Unknown]
  - Autoimmune hepatitis [Recovering/Resolving]

NARRATIVE: CASE EVENT DATE: 201508
